FAERS Safety Report 15931379 (Version 1)
Quarter: 2019Q1

REPORT INFORMATION
  Report Type: Spontaneous
  Country: TR (occurrence: TR)
  Receive Date: 20190207
  Receipt Date: 20190207
  Transmission Date: 20190417
  Serious: Yes (Other)
  Sender: FDA-Public Use
  Company Number: TR-CURIUM-201600098

PATIENT
  Age: 43 Year
  Sex: Female

DRUGS (1)
  1. SODIUM IODIDE I 131 [Suspect]
     Active Substance: SODIUM IODIDE I-131
     Indication: TOXIC NODULAR GOITRE
     Route: 065

REACTIONS (2)
  - Endocrine ophthalmopathy [Unknown]
  - Basedow^s disease [Unknown]
